FAERS Safety Report 12130202 (Version 1)
Quarter: 2016Q1

REPORT INFORMATION
  Report Type: Spontaneous
  Country: US (occurrence: None)
  Receive Date: 20160229
  Receipt Date: 20160229
  Transmission Date: 20160526
  Serious: Yes (Other)
  Sender: FDA-Public Use
  Company Number: None

PATIENT
  Age: 57 Year
  Sex: Male

DRUGS (6)
  1. BUPROPION. [Concomitant]
     Active Substance: BUPROPION
  2. DULOXETINE. [Concomitant]
     Active Substance: DULOXETINE
  3. BENZTROPINE [Concomitant]
     Active Substance: BENZTROPINE
  4. DISULFIRAM. [Concomitant]
     Active Substance: DISULFIRAM
  5. HARVONI [Suspect]
     Active Substance: LEDIPASVIR\SOFOSBUVIR
     Indication: HEPATITIS C
     Dosage: 1 TABLET DAILY X56 DAYS BY MOUTH
     Route: 048
     Dates: start: 20160129
  6. OLANZAPINE. [Concomitant]
     Active Substance: OLANZAPINE

REACTIONS (2)
  - Headache [None]
  - Nausea [None]
